FAERS Safety Report 9798093 (Version 3)
Quarter: 2014Q1

REPORT INFORMATION
  Report Type: Spontaneous
  Country: CA (occurrence: None)
  Receive Date: 20140102
  Receipt Date: 20140127
  Transmission Date: 20141002
  Serious: Yes (Life-Threatening, Hospitalization)
  Sender: FDA-Public Use
  Company Number: VAL_02880_2013

PATIENT
  Age: 55 Year
  Sex: Male

DRUGS (8)
  1. LOPRESSOR [Suspect]
     Indication: PRODUCT USED FOR UNKNOWN INDICATION
  2. GILENYA [Suspect]
     Indication: RELAPSING-REMITTING MULTIPLE SCLEROSIS
     Route: 048
     Dates: start: 20131216, end: 20131216
  3. PLAVIX [Concomitant]
  4. VIT D [Concomitant]
  5. LIPITOR [Concomitant]
  6. FLEXERIL [Concomitant]
  7. PANTOLOC [Concomitant]
  8. BETA BLOCKING AGENTS [Concomitant]

REACTIONS (4)
  - Bradycardia [None]
  - Atrioventricular block second degree [None]
  - Blood pressure fluctuation [None]
  - Dizziness [None]
